FAERS Safety Report 13645105 (Version 1)
Quarter: 2017Q2

REPORT INFORMATION
  Report Type: Spontaneous
  Country: US (occurrence: US)
  Receive Date: 20170612
  Receipt Date: 20170612
  Transmission Date: 20170830
  Serious: No
  Sender: FDA-Public Use
  Company Number: US-ROCHE-1310785

PATIENT
  Age: 72 Year
  Sex: Female

DRUGS (4)
  1. XELODA [Suspect]
     Active Substance: CAPECITABINE
     Indication: BREAST CANCER
     Dosage: 14 DAYS ON, 7DAYS OFF
     Route: 048
     Dates: start: 20130427
  2. XELODA [Suspect]
     Active Substance: CAPECITABINE
     Route: 048
     Dates: start: 20130811
  3. OXYCODONE [Concomitant]
     Active Substance: OXYCODONE
  4. MORPHINE [Concomitant]
     Active Substance: MORPHINE

REACTIONS (6)
  - Dry skin [Unknown]
  - Nail disorder [Unknown]
  - Diarrhoea [Unknown]
  - Palmar-plantar erythrodysaesthesia syndrome [Unknown]
  - Skin fissures [Unknown]
  - Dry skin [Unknown]

NARRATIVE: CASE EVENT DATE: 20130427
